FAERS Safety Report 7873030 (Version 9)
Quarter: 2013Q3

REPORT INFORMATION
  Report Type: Spontaneous
  Country: US (occurrence: US)
  Receive Date: 20110328
  Receipt Date: 20130729
  Transmission Date: 20140515
  Serious: Yes (Hospitalization, Other)
  Sender: FDA-Public Use
  Company Number: US-BIOGENIDEC-2011BI010340

PATIENT
  Age: 48 Year
  Sex: Female
  Weight: 99 kg

DRUGS (5)
  1. TYSABRI [Suspect]
     Indication: MULTIPLE SCLEROSIS
     Route: 042
     Dates: start: 20070108
  2. AVONEX [Concomitant]
     Route: 030
     Dates: start: 20030217, end: 20040130
  3. AVONEX [Concomitant]
     Route: 030
  4. HYDROCODONE [Concomitant]
     Indication: HEADACHE
  5. XANAX [Concomitant]

REACTIONS (10)
  - Multiple sclerosis relapse [Recovered/Resolved]
  - Complex partial seizures [Not Recovered/Not Resolved]
  - Cerebrovascular accident [Recovered/Resolved]
  - Vision blurred [Recovered/Resolved]
  - Blood pressure fluctuation [Not Recovered/Not Resolved]
  - Heart rate abnormal [Not Recovered/Not Resolved]
  - Infusion site pain [Recovered/Resolved]
  - Claustrophobia [Not Recovered/Not Resolved]
  - Hypotension [Unknown]
  - Memory impairment [Not Recovered/Not Resolved]
